FAERS Safety Report 25459723 (Version 1)
Quarter: 2025Q2

REPORT INFORMATION
  Report Type: Spontaneous
  Country: CA (occurrence: CA)
  Receive Date: 20250620
  Receipt Date: 20250620
  Transmission Date: 20250717
  Serious: Yes (Life-Threatening)
  Sender: TEVA
  Company Number: CA-TEVA-VS-3343435

PATIENT
  Age: 10 Year
  Sex: Female

DRUGS (5)
  1. ETOPOSIDE [Suspect]
     Active Substance: ETOPOSIDE
     Indication: Hodgkin^s disease
     Route: 042
  2. ADCETRIS [Concomitant]
     Active Substance: BRENTUXIMAB VEDOTIN
     Indication: Product used for unknown indication
     Route: 065
  3. DEXRAZOXANE [Concomitant]
     Active Substance: DEXRAZOXANE
     Indication: Product used for unknown indication
     Route: 065
  4. CYCLOPHOSPHAMIDE [Concomitant]
     Active Substance: CYCLOPHOSPHAMIDE
     Indication: Product used for unknown indication
     Route: 065
  5. DOXORUBICIN HYDROCHLORIDE [Concomitant]
     Active Substance: DOXORUBICIN HYDROCHLORIDE
     Indication: Product used for unknown indication
     Route: 065

REACTIONS (2)
  - Cyanosis [Recovered/Resolved]
  - Oxygen saturation decreased [Recovered/Resolved]
